FAERS Safety Report 14391334 (Version 1)
Quarter: 2018Q1

REPORT INFORMATION
  Report Type: Spontaneous
  Country: US (occurrence: US)
  Receive Date: 20180112
  Receipt Date: 20180112
  Transmission Date: 20180509
  Serious: No
  Sender: FDA-Public Use
  Company Number: None

PATIENT
  Age: 23 Year
  Sex: Female

DRUGS (1)
  1. STELARA [Suspect]
     Active Substance: USTEKINUMAB
     Indication: CROHN^S DISEASE
     Dosage: Q6WEEKS
     Route: 058
     Dates: start: 20170106

REACTIONS (5)
  - Fatigue [None]
  - Rash [None]
  - Hypersomnia [None]
  - Feeling abnormal [None]
  - Diarrhoea [None]

NARRATIVE: CASE EVENT DATE: 20180110
